FAERS Safety Report 7671808-4 (Version None)
Quarter: 2011Q3

REPORT INFORMATION
  Report Type: 
  Country: None (occurrence: None)
  Receive Date: 20110809
  Receipt Date: 20110729
  Transmission Date: 20111222
  Serious: Yes (Life-Threatening)
  Sender: FDA-Public Use
  Company Number: GB-ROCHE-790742

PATIENT
  Age: 65 Year
  Sex: Female
  Weight: 94.8 kg

DRUGS (16)
  1. ACETAMINOPHEN [Concomitant]
  2. RAMIPRIL [Concomitant]
  3. BUDESONIDE [Concomitant]
  4. SPIRONOLACTONE [Concomitant]
     Route: 048
  5. PRAVASTATIN [Concomitant]
     Route: 048
  6. AZATHIOPRINE [Concomitant]
  7. WARFARIN SODIUM [Concomitant]
     Indication: ATRIAL FIBRILLATION
     Route: 048
  8. BISOPROLOL FUMARATE [Concomitant]
     Route: 048
  9. AZULFIDINE [Concomitant]
  10. ACTEMRA [Suspect]
     Route: 042
     Dates: start: 20110217
  11. BUMETANIDE [Concomitant]
     Route: 048
  12. TRAMADOL HCL [Concomitant]
  13. HYDROXYCHLOROQUINE [Concomitant]
  14. DICLOFENAC SODIUM [Concomitant]
  15. ALBUTEROL [Concomitant]
     Route: 055
  16. LANSOPRAZOLE [Concomitant]

REACTIONS (1)
  - BRADYCARDIA [None]
